FAERS Safety Report 9171038 (Version 1)
Quarter: 2013Q1

REPORT INFORMATION
  Report Type: Spontaneous
  Country: US (occurrence: US)
  Receive Date: 20130319
  Receipt Date: 20130319
  Transmission Date: 20140127
  Serious: Yes (Hospitalization)
  Sender: FDA-Public Use
  Company Number: US-BRISTOL-MYERS SQUIBB COMPANY-17462466

PATIENT
  Age: 51 Year
  Sex: Male
  Weight: 136.05 kg

DRUGS (4)
  1. COUMADIN [Suspect]
  2. XARELTO [Suspect]
     Indication: THROMBOSIS
     Dosage: TABS
     Route: 048
     Dates: start: 20130128, end: 20130130
  3. VERAPAMIL [Concomitant]
     Indication: ARRHYTHMIA SUPRAVENTRICULAR
     Route: 048
  4. AMBIEN [Concomitant]
     Indication: SLEEP DISORDER
     Route: 048

REACTIONS (2)
  - Neuropathy peripheral [Recovered/Resolved]
  - Pulmonary thrombosis [Recovered/Resolved]
